FAERS Safety Report 5780621-4 (Version None)
Quarter: 2008Q2

REPORT INFORMATION
  Report Type: 
  Country: None (occurrence: None)
  Receive Date: 20080620
  Receipt Date: 20080613
  Transmission Date: 20081010
  Serious: Yes (Hospitalization, Other)
  Sender: FDA-Public Use
  Company Number: US-ELI_LILLY_AND_COMPANY-US200806003326

PATIENT
  Sex: Female

DRUGS (2)
  1. HUMALOG [Suspect]
     Dosage: 2 U, UNK
  2. HUMALOG [Suspect]
     Dosage: 4 U, UNK

REACTIONS (3)
  - HOSPITALISATION [None]
  - HYPOGLYCAEMIA [None]
  - LEG AMPUTATION [None]
